FAERS Safety Report 22155074 (Version 1)
Quarter: 2023Q1

REPORT INFORMATION
  Report Type: Spontaneous
  Country: IT (occurrence: IT)
  Receive Date: 20230330
  Receipt Date: 20230330
  Transmission Date: 20230418
  Serious: Yes (Hospitalization)
  Sender: FDA-Public Use
  Company Number: None

PATIENT
  Age: 63 Year
  Sex: Male

DRUGS (2)
  1. IRBESARTAN [Suspect]
     Active Substance: IRBESARTAN
     Indication: Hypertensive heart disease
     Dosage: 300 QD HE DECLARES THE START OF THERAPY FROM 02/13/2023 TO 03/05/2023 WITH APROVEL*28CPR 300MG: IRBE
     Route: 048
     Dates: start: 20230213, end: 20230305
  2. BARNIDIPINE HYDROCHLORIDE [Concomitant]
     Active Substance: BARNIDIPINE HYDROCHLORIDE
     Indication: Hypertensive heart disease
     Dosage: DECLARES INTAKE FROM 09/02/2023 OF VASEXTEN*28CPS 20MG RM: BARNIDIPINA (PA) - ATC: C08CA12 DOSAGE SC
     Route: 048
     Dates: start: 20230209

REACTIONS (5)
  - Fatigue [Recovering/Resolving]
  - Oedema [Recovering/Resolving]
  - Facial paresis [Recovering/Resolving]
  - Dysarthria [Recovering/Resolving]
  - Systolic hypertension [Recovering/Resolving]

NARRATIVE: CASE EVENT DATE: 20230213
